FAERS Safety Report 26094848 (Version 1)
Quarter: 2025Q4

REPORT INFORMATION
  Report Type: Spontaneous
  Country: US (occurrence: US)
  Receive Date: 20251126
  Receipt Date: 20251126
  Transmission Date: 20260117
  Serious: No
  Sender: ASTELLAS
  Company Number: US-ASTELLAS-2025-AER-064592

PATIENT
  Age: 69 Year
  Sex: Female

DRUGS (4)
  1. MYRBETRIQ [Suspect]
     Active Substance: MIRABEGRON
     Indication: Hypertonic bladder
     Dosage: USED FOR A MONTH OR TWO DOSAGE FORM: EXTENDED-RELEASE TABLETS
     Route: 065
     Dates: end: 2025
  2. MYRBETRIQ [Suspect]
     Active Substance: MIRABEGRON
     Dosage: DOSAGE FORM: EXTENDED-RELEASE TABLETS
     Route: 065
     Dates: start: 2025, end: 2025
  3. MYRBETRIQ [Suspect]
     Active Substance: MIRABEGRON
     Indication: Hypertonic bladder
     Dosage: DOSAGE FORM: EXTENDED-RELEASE TABLETS
     Route: 065
     Dates: end: 2025
  4. MYRBETRIQ [Suspect]
     Active Substance: MIRABEGRON
     Dosage: DOSAGE FORM: EXTENDED-RELEASE TABLETS
     Route: 065
     Dates: start: 2025

REACTIONS (2)
  - Nocturia [Unknown]
  - Therapeutic product effect incomplete [Unknown]
